FAERS Safety Report 18385140 (Version 1)
Quarter: 2020Q4

REPORT INFORMATION
  Report Type: Spontaneous
  Country: US (occurrence: US)
  Receive Date: 20201015
  Receipt Date: 20201015
  Transmission Date: 20210114
  Serious: Yes (Other)
  Sender: FDA-Public Use
  Company Number: US-B.I. PHARMACEUTICALS,INC./RIDGEFIELD-2020-BI-053531

PATIENT
  Sex: Female

DRUGS (3)
  1. BROVANA [Suspect]
     Active Substance: ARFORMOTEROL TARTRATE
     Indication: CHRONIC OBSTRUCTIVE PULMONARY DISEASE
  2. MIRAPEX [Suspect]
     Active Substance: PRAMIPEXOLE DIHYDROCHLORIDE
     Indication: PRODUCT USED FOR UNKNOWN INDICATION
     Dosage: PATIENT TOOK PILL ONE TIME, CUT THE PILL IN 1/4
  3. BROVANA [Suspect]
     Active Substance: ARFORMOTEROL TARTRATE
     Indication: ASTHMA
     Route: 055
     Dates: start: 202001

REACTIONS (7)
  - Urine output decreased [Unknown]
  - Off label use [Unknown]
  - Tremor [Unknown]
  - Oedema peripheral [Unknown]
  - Pulmonary congestion [Unknown]
  - Loss of consciousness [Unknown]
  - Depressed level of consciousness [Unknown]
